FAERS Safety Report 8800235 (Version 1)
Quarter: 2012Q4

REPORT INFORMATION
  Report Type: Report from Study
  Country: HU (occurrence: HU)
  Receive Date: 20120921
  Receipt Date: 20120921
  Transmission Date: 20130627
  Serious: Yes (Other)
  Sender: FDA-Public Use
  Company Number: HU-ROCHE-1123092

PATIENT
  Age: 76 Year
  Sex: Female

DRUGS (1)
  1. XELODA [Suspect]
     Indication: BREAST CANCER METASTATIC
     Route: 048
     Dates: start: 20090918, end: 201009

REACTIONS (5)
  - Renal colic [Unknown]
  - Colitis [Unknown]
  - Tumour marker increased [Unknown]
  - Osteitis [Unknown]
  - Metastases to lung [Unknown]
